FAERS Safety Report 5470554-5 (Version None)
Quarter: 2007Q3

REPORT INFORMATION
  Report Type: 
  Country: None (occurrence: None)
  Receive Date: 20070928
  Receipt Date: 20070921
  Transmission Date: 20080115
  Serious: Yes (Hospitalization, Other)
  Sender: FDA-Public Use
  Company Number: PHNU2007DE02193

PATIENT
  Sex: Male

DRUGS (2)
  1. SANDIMMUNE [Suspect]
     Indication: AUTOIMMUNE DISORDER
     Dosage: 4 MG/KG, QD
     Route: 048
     Dates: start: 20000201
  2. DECORTIN-H [Concomitant]
     Dosage: 3 MG DAILY

REACTIONS (6)
  - AUTOANTIBODY POSITIVE [None]
  - AUTOIMMUNE NEUTROPENIA [None]
  - AUTOIMMUNE THROMBOCYTOPENIA [None]
  - LEUKOPENIA [None]
  - NASOPHARYNGITIS [None]
  - RED BLOOD CELL COUNT DECREASED [None]
